FAERS Safety Report 4811310-8 (Version None)
Quarter: 2005Q4

REPORT INFORMATION
  Report Type: 
  Country: None (occurrence: None)
  Receive Date: 20051026
  Receipt Date: 20051026
  Transmission Date: 20060501
  Serious: Yes (Death)
  Sender: FDA-Public Use
  Company Number: None

PATIENT
  Age: 10 Year
  Sex: Female
  Weight: 26 kg

DRUGS (1)
  1. CLOFARABINE 1 MG/ML GENZYME [Suspect]
     Indication: ACUTE LYMPHOCYTIC LEUKAEMIA
     Dosage: 50 MG ONCE IV
     Route: 042
     Dates: start: 20051014, end: 20051014

REACTIONS (6)
  - CARDIO-RESPIRATORY ARREST [None]
  - INTERCOSTAL RETRACTION [None]
  - NASAL FLARING [None]
  - PROCEDURAL COMPLICATION [None]
  - PULSE ABSENT [None]
  - STRIDOR [None]
